FAERS Safety Report 8230897-9 (Version None)
Quarter: 2012Q1

REPORT INFORMATION
  Report Type: 
  Country: None (occurrence: None)
  Receive Date: 20120321
  Receipt Date: 20120306
  Transmission Date: 20120608
  Serious: Yes (Hospitalization)
  Sender: FDA-Public Use
  Company Number: A0968817A

PATIENT
  Age: 80 Year
  Sex: Male

DRUGS (1)
  1. TRANYLCYPROMINE SULFATE [Suspect]
     Indication: PRODUCT USED FOR UNKNOWN INDICATION
     Dosage: 10 MG ;TWICE PER DAY / ORAL
     Route: 048

REACTIONS (1)
  - FALL [None]
